FAERS Safety Report 4355726-5 (Version None)
Quarter: 2004Q2

REPORT INFORMATION
  Report Type: 
  Country: None (occurrence: None)
  Receive Date: 20040510
  Receipt Date: 20040510
  Transmission Date: 20050107
  Serious: Yes (Hospitalization)
  Sender: FDA-Public Use
  Company Number: None

PATIENT
  Age: 82 Year
  Sex: Female
  Weight: 72.5755 kg

DRUGS (9)
  1. NAMENDA [Suspect]
     Indication: DEMENTIA
     Dosage: STARTER PACK
     Dates: start: 20040305, end: 20040405
  2. NORVASC [Concomitant]
  3. ATENOLOL [Concomitant]
  4. EFFEXOR [Concomitant]
  5. BENEZOR [Concomitant]
  6. NEXIUM [Concomitant]
  7. FLONASE [Concomitant]
  8. IBUPROFEN [Concomitant]
  9. POTASSIUM [Concomitant]

REACTIONS (3)
  - CONFUSIONAL STATE [None]
  - MALIGNANT HYPERTENSION [None]
  - SOMNOLENCE [None]
